FAERS Safety Report 9869027 (Version 1)
Quarter: 2014Q1

REPORT INFORMATION
  Report Type: Spontaneous
  Country: CA (occurrence: CA)
  Receive Date: 20140205
  Receipt Date: 20140205
  Transmission Date: 20141002
  Serious: Yes (Hospitalization, Other)
  Sender: FDA-Public Use
  Company Number: CA-ROCHE-1342678

PATIENT
  Age: 25 Year
  Sex: Male

DRUGS (5)
  1. XOLAIR [Suspect]
     Indication: ASTHMA
     Route: 058
     Dates: start: 20120815
  2. AIROMIR [Concomitant]
  3. SINGULAR [Concomitant]
  4. SYMBICORT [Concomitant]
  5. PREDNISONE [Concomitant]

REACTIONS (6)
  - Tympanic membrane perforation [Unknown]
  - Lower respiratory tract infection [Unknown]
  - Oral infection [Unknown]
  - Obstructive airways disorder [Unknown]
  - Influenza [Unknown]
  - Diarrhoea [Unknown]
